FAERS Safety Report 24650232 (Version 1)
Quarter: 2024Q4

REPORT INFORMATION
  Report Type: Spontaneous
  Country: CN (occurrence: CN)
  Receive Date: 20241122
  Receipt Date: 20241122
  Transmission Date: 20250115
  Serious: Yes (Other)
  Sender: JOHNSON AND JOHNSON
  Company Number: CN-JNJFOC-20241153434

PATIENT
  Age: 32 Year
  Sex: Male
  Weight: 56 kg

DRUGS (2)
  1. REMICADE [Suspect]
     Active Substance: INFLIXIMAB
     Indication: Crohn^s disease
     Route: 041
     Dates: start: 20241104, end: 20241104
  2. REMICADE [Suspect]
     Active Substance: INFLIXIMAB
     Indication: Immunosuppression

REACTIONS (3)
  - Vision blurred [Recovering/Resolving]
  - Dizziness [Recovering/Resolving]
  - Infusion related reaction [Recovering/Resolving]

NARRATIVE: CASE EVENT DATE: 20241104
